FAERS Safety Report 23934084 (Version 2)
Quarter: 2024Q3

REPORT INFORMATION
  Report Type: Spontaneous
  Country: JP (occurrence: JP)
  Receive Date: 20240603
  Receipt Date: 20240913
  Transmission Date: 20241016
  Serious: Yes (Hospitalization, Other)
  Sender: FERRING
  Company Number: JP-ferring-EVA202400817FERRINGPH

PATIENT

DRUGS (3)
  1. NOCDURNA [Suspect]
     Active Substance: DESMOPRESSIN ACETATE
     Indication: Nocturia
     Dosage: 50 UG, 1 TIME DAILY
     Route: 048
     Dates: start: 202307, end: 20240510
  2. PREDNISOLONE [Concomitant]
     Active Substance: PREDNISOLONE
     Route: 065
  3. VIBEGRON [Concomitant]
     Active Substance: VIBEGRON
     Route: 065

REACTIONS (4)
  - Pancreatitis [Unknown]
  - Contraindicated product administered [Recovered/Resolved]
  - Therapy interrupted [Recovered/Resolved]
  - Labelled drug-drug interaction issue [Recovered/Resolved]

NARRATIVE: CASE EVENT DATE: 20240501
